FAERS Safety Report 24551240 (Version 1)
Quarter: 2024Q4

REPORT INFORMATION
  Report Type: Spontaneous
  Country: AU (occurrence: AU)
  Receive Date: 20241025
  Receipt Date: 20241025
  Transmission Date: 20250115
  Serious: Yes (Death)
  Sender: CARA THERAPEUTICS
  Company Number: AU-Vifor Pharma-VIT-2024-07785

PATIENT
  Sex: Male
  Weight: 105 kg

DRUGS (18)
  1. KORSUVA [Suspect]
     Active Substance: DIFELIKEFALIN ACETATE
     Indication: Chronic kidney disease-associated pruritus
     Dosage: 50 MCG, 3 IN 1 WK
     Route: 050
     Dates: start: 20240722, end: 20240724
  2. KORSUVA [Suspect]
     Active Substance: DIFELIKEFALIN ACETATE
     Indication: Pruritus
  3. KORSUVA [Suspect]
     Active Substance: DIFELIKEFALIN ACETATE
     Indication: Chronic kidney disease-associated pruritus
  4. IRON POLYMALTOSE [Suspect]
     Active Substance: IRON POLYMALTOSE
     Indication: Product used for unknown indication
  5. ENOXAPARIN [Concomitant]
     Active Substance: ENOXAPARIN
  6. ALLOPURINOL [Concomitant]
     Active Substance: ALLOPURINOL
  7. SYMBICORT [Concomitant]
     Active Substance: BUDESONIDE\FORMOTEROL FUMARATE DIHYDRATE
  8. ESOMEPRAZOLE [Concomitant]
     Active Substance: ESOMEPRAZOLE
  9. LEVOTHYROXINE [Concomitant]
     Active Substance: LEVOTHYROXINE
  10. EMLA [Concomitant]
     Active Substance: LIDOCAINE\PRILOCAINE
  11. MAGNESIUM [Concomitant]
     Active Substance: MAGNESIUM
  12. MELOXICAM [Concomitant]
     Active Substance: MELOXICAM
  13. MIDODRINE [Concomitant]
     Active Substance: MIDODRINE
  14. ACETAMINOPHEN [Concomitant]
     Active Substance: ACETAMINOPHEN
  15. PREGABALIN [Concomitant]
     Active Substance: PREGABALIN
  16. SERTRALINE [Concomitant]
     Active Substance: SERTRALINE HYDROCHLORIDE
  17. SEVELAMER [Concomitant]
     Active Substance: SEVELAMER
  18. FEXOFENADINE [Concomitant]
     Active Substance: FEXOFENADINE HYDROCHLORIDE

REACTIONS (6)
  - Death [Fatal]
  - Palpitations [Recovered/Resolved]
  - Vomiting [Recovered/Resolved]
  - Nausea [Recovered/Resolved]
  - Drug ineffective [Unknown]
  - Palpitations [Recovered/Resolved]

NARRATIVE: CASE EVENT DATE: 20240101
